FAERS Safety Report 19840181 (Version 1)
Quarter: 2021Q3

REPORT INFORMATION
  Report Type: Spontaneous
  Country: US (occurrence: US)
  Receive Date: 20210916
  Receipt Date: 20210916
  Transmission Date: 20211014
  Serious: Yes (Death)
  Sender: FDA-Public Use
  Company Number: None

PATIENT
  Age: 74 Year
  Sex: Female

DRUGS (1)
  1. APIXABAN [Suspect]
     Active Substance: APIXABAN

REACTIONS (3)
  - Cerebral haemorrhage [None]
  - Unresponsive to stimuli [None]
  - Hypotonia [None]

NARRATIVE: CASE EVENT DATE: 20210820
